FAERS Safety Report 9255600 (Version 2)
Quarter: 2013Q3

REPORT INFORMATION
  Report Type: Spontaneous
  Country: BR (occurrence: BR)
  Receive Date: 20130425
  Receipt Date: 20130725
  Transmission Date: 20140515
  Serious: Yes (Other)
  Sender: FDA-Public Use
  Company Number: BR-GLAXOSMITHKLINE-A1021346A

PATIENT
  Age: 51 Year
  Sex: Male
  Weight: 78 kg

DRUGS (2)
  1. AVAMYS [Suspect]
     Indication: RHINITIS ALLERGIC
     Dosage: 27.5MCG SEE DOSAGE TEXT
     Route: 045
     Dates: start: 201212, end: 20130417
  2. LOSARTAN [Concomitant]
     Dosage: 1TAB IN THE MORNING
     Route: 048
     Dates: start: 2011

REACTIONS (2)
  - Ocular hypertension [Unknown]
  - Glaucoma [Not Recovered/Not Resolved]
